FAERS Safety Report 5602079-8 (Version None)
Quarter: 2008Q1

REPORT INFORMATION
  Report Type: 
  Country: None (occurrence: None)
  Receive Date: 20080122
  Receipt Date: 20080103
  Transmission Date: 20080703
  Serious: Yes (Hospitalization)
  Sender: FDA-Public Use
  Company Number: 2008BM000005

PATIENT
  Age: 77 Year
  Sex: Female

DRUGS (3)
  1. PREDNISONE [Suspect]
  2. CYCLOPHOSPHAMIDE [Suspect]
  3. ORAPRED [Suspect]

REACTIONS (8)
  - BRAIN ABSCESS [None]
  - COMA [None]
  - DIZZINESS [None]
  - GENERAL PHYSICAL HEALTH DETERIORATION [None]
  - HEADACHE [None]
  - LETHARGY [None]
  - LUNG INFILTRATION [None]
  - NOCARDIA SEPSIS [None]
